FAERS Safety Report 7912149-7 (Version None)
Quarter: 2011Q4

REPORT INFORMATION
  Report Type: 
  Country: None (occurrence: None)
  Receive Date: 20111114
  Receipt Date: 20111111
  Transmission Date: 20120403
  Serious: Yes (Other)
  Sender: FDA-Public Use
  Company Number: US-PFIZER INC-2011277248

PATIENT
  Sex: Male
  Weight: 93.42 kg

DRUGS (8)
  1. CLONAZEPAM [Concomitant]
     Dosage: 1 MG, 1X/DAY
     Route: 048
  2. ALLEGRA [Concomitant]
     Dosage: 180 MG, 1X/DAY
     Route: 048
  3. PRAVASTATIN [Concomitant]
     Dosage: 40 MG, 2X/DAY
     Route: 048
  4. TAMSULOSIN [Concomitant]
     Dosage: 0.4 MG, 1X/DAY
     Route: 048
  5. CHANTIX [Suspect]
     Dosage: 0.5 MG, 2X/DAY
     Route: 048
     Dates: start: 20111101
  6. CHANTIX [Suspect]
     Indication: SMOKING CESSATION THERAPY
     Dosage: 0.5 MG, 1X/DAY
     Route: 048
     Dates: start: 20111106, end: 20111101
  7. OXYBUTYNIN [Concomitant]
     Dosage: 5 MG, 1X/DAY
     Route: 048
  8. METOPROLOL [Concomitant]
     Dosage: 25 MG, 2X/DAY
     Route: 048

REACTIONS (3)
  - PAIN IN EXTREMITY [None]
  - BACK PAIN [None]
  - MOBILITY DECREASED [None]
